FAERS Safety Report 7866917-0 (Version None)
Quarter: 2011Q4

REPORT INFORMATION
  Report Type: 
  Country: None (occurrence: None)
  Receive Date: 20111026
  Receipt Date: 20111014
  Transmission Date: 20120403
  Serious: Yes (Other)
  Sender: FDA-Public Use
  Company Number: JP-2011-11626

PATIENT
  Age: 72 Year
  Sex: Male

DRUGS (5)
  1. OZAPEN (OZAGREL SODIUM) INJECTION [Suspect]
     Dosage: 90 MG MILLIGRAM(S), BID, IV DRIP
     Route: 041
     Dates: start: 20110918, end: 20110927
  2. AMARYL [Concomitant]
  3. PLETAL [Suspect]
     Indication: CEREBRAL INFARCTION
     Dosage: 50 MG MILLIGRAM(S), BID, ORAL
     Route: 048
     Dates: start: 20110924, end: 20110927
  4. RADICUT (EDARAVONE) [Concomitant]
  5. JANUVIA [Concomitant]

REACTIONS (1)
  - HAEMORRHAGIC CEREBRAL INFARCTION [None]
